FAERS Safety Report 13180241 (Version 2)
Quarter: 2017Q2

REPORT INFORMATION
  Report Type: Report from Study
  Country: JP (occurrence: JP)
  Receive Date: 20170202
  Receipt Date: 20170421
  Transmission Date: 20170830
  Serious: Yes (Hospitalization)
  Sender: FDA-Public Use
  Company Number: JP-ACTELION-A-CH2017-149181

PATIENT
  Age: 43 Year
  Sex: Female
  Weight: 54.4 kg

DRUGS (20)
  1. EPOPROSTENOL ACT [Suspect]
     Active Substance: EPOPROSTENOL
     Dosage: 20.37 NG/KG, PER MIN
     Route: 042
     Dates: start: 20150603
  2. EPOPROSTENOL ACT [Suspect]
     Active Substance: EPOPROSTENOL
     Dosage: 20.99 NG/KG, PER MIN
     Route: 042
     Dates: start: 20150701
  3. TRACLEER [Concomitant]
     Active Substance: BOSENTAN
     Indication: PULMONARY ARTERIAL HYPERTENSION
     Dosage: 62.5 UNK, UNK
  4. ADCIRCA [Concomitant]
     Active Substance: TADALAFIL
  5. LASIX [Concomitant]
     Active Substance: FUROSEMIDE
  6. EPOPROSTENOL ACT [Suspect]
     Active Substance: EPOPROSTENOL
     Dosage: 18.52 NG/KG, PER MIN
     Route: 042
     Dates: start: 20150226
  7. EPOPROSTENOL ACT [Suspect]
     Active Substance: EPOPROSTENOL
     Dosage: 22.2 NG/KG, PER MIN
     Route: 042
     Dates: start: 20150805
  8. CARELOAD [Concomitant]
     Active Substance: BERAPROST SODIUM
  9. K-SUPPLY [Concomitant]
     Active Substance: POTASSIUM CHLORIDE
  10. GASMOTIN [Concomitant]
     Active Substance: MOSAPRIDE CITRATE
  11. MUCOSTA [Concomitant]
     Active Substance: REBAMIPIDE
  12. EPOPROSTENOL ACT [Suspect]
     Active Substance: EPOPROSTENOL
     Dosage: 0.47 NG/KG, PER MIN
     Route: 042
     Dates: start: 20150201
  13. ALDACTONE [Concomitant]
     Active Substance: SPIRONOLACTONE
  14. LAC-B [Concomitant]
     Active Substance: BIFIDOBACTERIUM SPP.
  15. VOLIBRIS [Suspect]
     Active Substance: AMBRISENTAN
     Indication: PULMONARY ARTERIAL HYPERTENSION
     Dosage: 2.5 MG, BID
     Route: 048
     Dates: start: 20150105
  16. TAKEPRON [Concomitant]
     Active Substance: LANSOPRAZOLE
  17. EPOPROSTENOL ACT [Suspect]
     Active Substance: EPOPROSTENOL
     Indication: PULMONARY ARTERIAL HYPERTENSION
     Dosage: 0.16 NG/KG, PER MIN
     Route: 042
     Dates: start: 20150114
  18. EPOPROSTENOL ACT [Suspect]
     Active Substance: EPOPROSTENOL
     Dosage: 19.14 NG/KG, PER MIN
     Route: 042
     Dates: start: 20150513
  19. ALESION [Concomitant]
     Active Substance: EPINASTINE HYDROCHLORIDE
  20. OXYGEN. [Concomitant]
     Active Substance: OXYGEN

REACTIONS (19)
  - Headache [Recovering/Resolving]
  - Nasal congestion [Recovering/Resolving]
  - Erythema [Recovered/Resolved]
  - Catheter site pain [Recovered/Resolved]
  - Menorrhagia [Not Recovered/Not Resolved]
  - Submaxillary gland enlargement [Recovered/Resolved]
  - Anaemia [Recovered/Resolved]
  - Catheter site induration [Recovered/Resolved]
  - Nausea [Recovering/Resolving]
  - Haemoglobin decreased [Recovered/Resolved]
  - Catheter site warmth [Recovered/Resolved]
  - Device occlusion [Recovered/Resolved]
  - Hot flush [Recovering/Resolving]
  - Diarrhoea [Recovering/Resolving]
  - Catheter site pain [Recovering/Resolving]
  - Pruritus [Recovered/Resolved]
  - Haematocrit decreased [Recovered/Resolved]
  - Pain in jaw [Recovering/Resolving]
  - Swelling [Recovered/Resolved]

NARRATIVE: CASE EVENT DATE: 20150115
